FAERS Safety Report 11724232 (Version 3)
Quarter: 2016Q1

REPORT INFORMATION
  Report Type: Spontaneous
  Country: US (occurrence: US)
  Receive Date: 20151111
  Receipt Date: 20160324
  Transmission Date: 20160525
  Serious: No
  Sender: FDA-Public Use
  Company Number: US-PFIZER INC-2015382082

PATIENT
  Age: 71 Year
  Sex: Female

DRUGS (7)
  1. GUAIFENESIN. [Concomitant]
     Active Substance: GUAIFENESIN
     Indication: HYPERSENSITIVITY
     Dosage: UNK
  2. CYCLOBENZAPRINE [Concomitant]
     Active Substance: CYCLOBENZAPRINE
     Indication: MUSCLE RELAXANT THERAPY
     Dosage: 5 MG, AS NEEDED
     Dates: start: 201401
  3. PREMARIN [Suspect]
     Active Substance: ESTROGENS, CONJUGATED
     Indication: HORMONE REPLACEMENT THERAPY
     Dosage: 1 G, 2X/WEEK
     Dates: start: 20151103
  4. L-GLUTAMINE /00503401/ [Concomitant]
     Active Substance: GLUTAMINE
     Dosage: UNK
  5. PREMARIN [Suspect]
     Active Substance: ESTROGENS, CONJUGATED
     Indication: ATROPHIC VULVOVAGINITIS
  6. PREMARIN [Suspect]
     Active Substance: ESTROGENS, CONJUGATED
     Indication: SCAR
  7. CETIRIZINE HYDROCHLORIDE. [Concomitant]
     Active Substance: CETIRIZINE HYDROCHLORIDE
     Indication: HYPERSENSITIVITY
     Dosage: UNK

REACTIONS (1)
  - Urogenital prolapse [Not Recovered/Not Resolved]
